FAERS Safety Report 15883936 (Version 1)
Quarter: 2019Q1

REPORT INFORMATION
  Report Type: Spontaneous
  Country: US (occurrence: US)
  Receive Date: 20190107
  Receipt Date: 20190107
  Transmission Date: 20190417
  Serious: No
  Sender: FDA-Public Use
  Company Number: None

PATIENT
  Age: 56 Year
  Sex: Female

DRUGS (1)
  1. SPRYCEL [Suspect]
     Active Substance: DASATINIB
     Dates: start: 20180103

REACTIONS (3)
  - Rhinorrhoea [None]
  - Nasopharyngitis [None]
  - Cough [None]

NARRATIVE: CASE EVENT DATE: 20190102
